FAERS Safety Report 12502555 (Version 1)
Quarter: 2016Q2

REPORT INFORMATION
  Report Type: Spontaneous
  Country: JP (occurrence: JP)
  Receive Date: 20160627
  Receipt Date: 20160627
  Transmission Date: 20160815
  Serious: Yes (Hospitalization)
  Sender: FDA-Public Use
  Company Number: JP-MYLANLABS-2014M1000026

PATIENT

DRUGS (5)
  1. PROMETHAZINE [Suspect]
     Active Substance: PROMETHAZINE\PROMETHAZINE HYDROCHLORIDE
     Indication: BIPOLAR DISORDER
     Dosage: 1500 MG, QD
     Route: 048
  2. CHLORPROMAZINE. [Suspect]
     Active Substance: CHLORPROMAZINE
     Indication: BIPOLAR DISORDER
     Dosage: 1875 MG, QD
     Route: 048
  3. PHENOBARBITAL. [Suspect]
     Active Substance: PHENOBARBITAL
     Indication: BIPOLAR DISORDER
     Dosage: 4500 MG, QD
     Route: 048
  4. LITHIUM. [Suspect]
     Active Substance: LITHIUM
     Indication: BIPOLAR DISORDER
     Dosage: 600 MG, QD
     Route: 048
  5. PAROXETINE. [Suspect]
     Active Substance: PAROXETINE
     Indication: BIPOLAR DISORDER
     Dosage: 1200 MG, QD

REACTIONS (3)
  - Toxicity to various agents [Recovering/Resolving]
  - Nephrogenic diabetes insipidus [Recovering/Resolving]
  - Overdose [Recovering/Resolving]
